FAERS Safety Report 5637209-5 (Version None)
Quarter: 2008Q1

REPORT INFORMATION
  Report Type: 
  Country: None (occurrence: None)
  Receive Date: 20080219
  Receipt Date: 20080209
  Transmission Date: 20080703
  Serious: Yes (Other)
  Sender: FDA-Public Use
  Company Number: 2008003899

PATIENT
  Age: 52 Year
  Sex: Female
  Weight: 54.4316 kg

DRUGS (4)
  1. ZYRTEC [Suspect]
     Indication: PRURITUS
     Dosage: 10 MG EVERY DAY THEN 20 MG EVERY DAY (10 MG), ORAL
     Route: 048
     Dates: start: 20000101
  2. ACTIVA (BIFIDOBACTERIUM BIFIBU, LACTOBACILLUS BULGARICUS, STREPTOCOCCU [Concomitant]
  3. NEURONTIN [Concomitant]
  4. PREVACID [Concomitant]

REACTIONS (7)
  - ANOREXIA [None]
  - COLONIC POLYP [None]
  - INSOMNIA [None]
  - PRURITUS [None]
  - TREATMENT NONCOMPLIANCE [None]
  - TREMOR [None]
  - WEIGHT DECREASED [None]
